FAERS Safety Report 16001344 (Version 1)
Quarter: 2019Q1

REPORT INFORMATION
  Report Type: Spontaneous
  Country: US (occurrence: US)
  Receive Date: 20190224
  Receipt Date: 20190224
  Transmission Date: 20190418
  Serious: No
  Sender: FDA-Public Use
  Company Number: None

PATIENT
  Age: 4 Year
  Sex: Male
  Weight: 20.25 kg

DRUGS (1)
  1. CEFDINIR FOR ORAL SUSPENSION USP [Suspect]
     Active Substance: CEFDINIR
     Indication: EAR INFECTION
     Dosage: ?          QUANTITY:6 MILLILITERS;?
     Route: 048

REACTIONS (2)
  - Drug monitoring procedure not performed [None]
  - Product dispensing error [None]

NARRATIVE: CASE EVENT DATE: 20190223
